FAERS Safety Report 6162006-4 (Version None)
Quarter: 2009Q2

REPORT INFORMATION
  Report Type: 
  Country: None (occurrence: None)
  Receive Date: 20090421
  Receipt Date: 20090331
  Transmission Date: 20091009
  Serious: Yes (Hospitalization)
  Sender: FDA-Public Use
  Company Number: JP-MERCK-0903USA01022

PATIENT
  Age: 36 Year
  Sex: Female
  Weight: 49 kg

DRUGS (6)
  1. FOSAMAX [Suspect]
     Indication: OSTEOPOROSIS PROPHYLAXIS
     Route: 048
     Dates: start: 20090217, end: 20090302
  2. PEPCID [Suspect]
     Indication: PROPHYLAXIS AGAINST GASTROINTESTINAL ULCER
     Route: 048
     Dates: start: 20090217, end: 20090302
  3. BAKTAR [Suspect]
     Indication: ANTIFUNGAL PROPHYLAXIS
     Route: 048
     Dates: start: 20090217, end: 20090302
  4. WARFARIN POTASSIUM [Suspect]
     Indication: THROMBOSIS PROPHYLAXIS
     Route: 048
     Dates: start: 20090217, end: 20090302
  5. SOL MELCORT [Concomitant]
     Indication: IGA NEPHROPATHY
     Route: 041
     Dates: start: 20090217, end: 20090310
  6. PREDONINE [Concomitant]
     Indication: IGA NEPHROPATHY
     Route: 048
     Dates: start: 20090217, end: 20090310

REACTIONS (1)
  - RASH PAPULAR [None]
